FAERS Safety Report 8390369-8 (Version None)
Quarter: 2012Q1

REPORT INFORMATION
  Report Type: 
  Country: None (occurrence: None)
  Receive Date: 20120323
  Receipt Date: 20110516
  Transmission Date: 20120608
  Serious: Yes (Hospitalization)
  Sender: FDA-Public Use
  Company Number: 163-21880-11031290

PATIENT
  Age: 64 Year
  Sex: Female

DRUGS (5)
  1. NORCO [Concomitant]
  2. ATIVAN [Concomitant]
  3. REVLIMID [Suspect]
     Indication: MULTIPLE MYELOMA
     Dosage: 25 MG, X21 DAYS, PO
     Route: 048
     Dates: start: 20110107
  4. DEXAMETHASONE [Concomitant]
  5. DURAGESIC-100 [Concomitant]

REACTIONS (1)
  - PULMONARY EMBOLISM [None]
